FAERS Safety Report 7250833-1 (Version None)
Quarter: 2011Q1

REPORT INFORMATION
  Report Type: 
  Country: None (occurrence: None)
  Receive Date: 20110128
  Receipt Date: 20110119
  Transmission Date: 20110831
  Serious: Yes (Other)
  Sender: FDA-Public Use
  Company Number: US-JNJFOC-20100703733

PATIENT
  Sex: Female

DRUGS (13)
  1. REGLAN [Concomitant]
  2. ZETIA [Concomitant]
  3. COZAAR [Concomitant]
  4. METHYLPREDNISOLONE [Suspect]
     Indication: PRODUCT USED FOR UNKNOWN INDICATION
     Route: 065
  5. SINGULAIR [Concomitant]
  6. DARVOCET [Concomitant]
  7. SYNTHROID [Concomitant]
  8. ZELNORM [Concomitant]
  9. LEVAQUIN [Suspect]
     Indication: RESPIRATORY TRACT INFECTION
     Route: 048
  10. PREDNISONE [Suspect]
     Indication: RHINITIS ALLERGIC
     Route: 065
  11. LEVAQUIN [Suspect]
     Indication: SINUSITIS
     Route: 048
  12. LEVAQUIN [Suspect]
     Indication: BRONCHITIS
     Route: 048
  13. CIPROFLOXACIN [Suspect]
     Indication: INFECTION
     Route: 065

REACTIONS (2)
  - EPICONDYLITIS [None]
  - TENDONITIS [None]
